FAERS Safety Report 5467061-2 (Version None)
Quarter: 2007Q3

REPORT INFORMATION
  Report Type: 
  Country: None (occurrence: None)
  Receive Date: 20070925
  Receipt Date: 20070919
  Transmission Date: 20080115
  Serious: Yes (Other)
  Sender: FDA-Public Use
  Company Number: A0645511A

PATIENT
  Sex: Male

DRUGS (1)
  1. GOODY'S EXTRA STRENGTH HEADACHE POWDER [Suspect]
     Route: 048

REACTIONS (3)
  - DEPENDENCE [None]
  - PHARMACEUTICAL PRODUCT COMPLAINT [None]
  - STOMACH DISCOMFORT [None]
